FAERS Safety Report 14551254 (Version 1)
Quarter: 2018Q1

REPORT INFORMATION
  Report Type: Spontaneous
  Country: US (occurrence: US)
  Receive Date: 20180220
  Receipt Date: 20180220
  Transmission Date: 20180509
  Serious: Yes (Other)
  Sender: FDA-Public Use
  Company Number: US-009507513-1802USA007262

PATIENT
  Sex: Male

DRUGS (2)
  1. ZOCOR [Suspect]
     Active Substance: SIMVASTATIN
     Indication: BLOOD CHOLESTEROL INCREASED
     Route: 048
  2. NIZORAL [Suspect]
     Active Substance: KETOCONAZOLE
     Indication: DANDRUFF

REACTIONS (2)
  - Mental impairment [Unknown]
  - Intellectual disability [Unknown]
